FAERS Safety Report 9056308 (Version 2)
Quarter: 2013Q1

REPORT INFORMATION
  Report Type: Report from Study
  Country: AR (occurrence: AR)
  Receive Date: 20130204
  Receipt Date: 20130212
  Transmission Date: 20140127
  Serious: Yes (Hospitalization)
  Sender: FDA-Public Use
  Company Number: AR-ABBOTT-13P-007-1042739-00

PATIENT
  Age: 56 None
  Sex: Male

DRUGS (3)
  1. HUMIRA [Suspect]
     Indication: PSORIASIS
     Dates: start: 20120113, end: 20121225
  2. PARACETAMOL [Concomitant]
     Indication: ANALGESIC THERAPY
  3. ANTIBIOTICS [Concomitant]
     Indication: PRODUCT USED FOR UNKNOWN INDICATION

REACTIONS (2)
  - Paralysis [Recovering/Resolving]
  - Pyrexia [Recovering/Resolving]
